FAERS Safety Report 7686404-2 (Version None)
Quarter: 2011Q3

REPORT INFORMATION
  Report Type: 
  Country: None (occurrence: None)
  Receive Date: 20110816
  Receipt Date: 20110803
  Transmission Date: 20111222
  Serious: Yes (Other)
  Sender: FDA-Public Use
  Company Number: US-ELI_LILLY_AND_COMPANY-US201108001397

PATIENT
  Age: 70 Year
  Sex: Female

DRUGS (2)
  1. CYMBALTA [Suspect]
     Indication: ARTHRALGIA
     Dosage: 60 MG, QD
     Dates: start: 20060101, end: 20110501
  2. ANTIHYPERTENSIVES [Concomitant]

REACTIONS (2)
  - APPENDICECTOMY [None]
  - SURGERY [None]
